FAERS Safety Report 5901530-3 (Version None)
Quarter: 2008Q3

REPORT INFORMATION
  Report Type: 
  Country: None (occurrence: None)
  Receive Date: 20080925
  Receipt Date: 20080912
  Transmission Date: 20090109
  Serious: Yes (Hospitalization)
  Sender: FDA-Public Use
  Company Number: IPS_01258_2008

PATIENT
  Sex: Male
  Weight: 100 kg

DRUGS (17)
  1. APO-GO [Suspect]
     Indication: PARKINSON'S DISEASE
     Dosage: (2 MG PER HOUR FOR 2 YEARS FOR 12 HOURS PER DAY [06:00 H. TO 18:00 H.] SUBCUTANEOUS)
     Route: 058
     Dates: start: 20060801, end: 20080726
  2. MADOPAR LT [Concomitant]
  3. COMTESS [Concomitant]
  4. SEROQUEL [Concomitant]
  5. SEROQUEL [Concomitant]
  6. EXELON /01383201/ [Concomitant]
  7. BELOC ZOK [Concomitant]
  8. DIAZEPAM [Concomitant]
  9. PANTOZOL /01263202/ [Concomitant]
  10. 'ASCOVER 75' [Concomitant]
  11. SIMVAHEXAL [Concomitant]
  12. AMIODARONE [Concomitant]
  13. ANDROCUR [Concomitant]
  14. ZOP [Concomitant]
  15. METHIONINE [Concomitant]
  16. SIOFOR [Concomitant]
  17. FOLSAEURE [Concomitant]

REACTIONS (4)
  - AKINESIA [None]
  - INFUSION SITE NECROSIS [None]
  - MALAISE [None]
  - NECROSIS [None]
